FAERS Safety Report 19191810 (Version 2)
Quarter: 2021Q2

REPORT INFORMATION
  Report Type: Spontaneous
  Country: RU (occurrence: RU)
  Receive Date: 20210428
  Receipt Date: 20210507
  Transmission Date: 20210717
  Serious: Yes (Life-Threatening, Hospitalization, Disabling, Other)
  Sender: FDA-Public Use
  Company Number: RU-009507513-2104RUS006036

PATIENT
  Age: 10 Year
  Sex: Male
  Weight: 28.2 kg

DRUGS (20)
  1. TEMODAL [Suspect]
     Active Substance: TEMOZOLOMIDE
     Indication: METASTASES TO LYMPH NODES
  2. TOPOTECAN [Suspect]
     Active Substance: TOPOTECAN HYDROCHLORIDE
     Dosage: (1?3 DAYS) SINGLE DOSE (SD) = 2MG DAILY DOSE (DD) = 6MG
     Dates: start: 20200814, end: 20200816
  3. ETOPOSIDE. [Suspect]
     Active Substance: ETOPOSIDE
     Dosage: (1?3 DAYS) RD = 100MG CD = 300MG
     Dates: start: 20201103, end: 20201104
  4. TEMODAL [Suspect]
     Active Substance: TEMOZOLOMIDE
     Indication: NASAL CAVITY CANCER
  5. IRINOTECAN [Suspect]
     Active Substance: IRINOTECAN
     Dosage: 50 MILLIGRAM/SQ. METER
  6. TOPOTECAN [Suspect]
     Active Substance: TOPOTECAN HYDROCHLORIDE
     Indication: RHABDOMYOSARCOMA
     Dosage: (1?3 DAYS) SINGLE DOSE (SD) = 2MG DAILY DOSE (DD) = 6MG
     Dates: start: 20200616, end: 20200620
  7. TEMODAL [Suspect]
     Active Substance: TEMOZOLOMIDE
     Indication: PANCREATIC CARCINOMA METASTATIC
  8. IRINOTECAN [Suspect]
     Active Substance: IRINOTECAN
     Indication: RHABDOMYOSARCOMA
     Dosage: (1?5 DAYS) SINGLE DOSE (SD) = 50MG DAILY DOSE (DD) = 250MG
     Dates: start: 20200522, end: 20200620
  9. TOPOTECAN [Suspect]
     Active Substance: TOPOTECAN HYDROCHLORIDE
     Dosage: (1?3 DAYS) SINGLE DOSE (SD) = 2MG DAILY DOSE (DD) = 6MG
     Dates: start: 20201008, end: 20201010
  10. ETOPOSIDE. [Suspect]
     Active Substance: ETOPOSIDE
     Dosage: (1?3 DAYS) RD = 100MG CD = 300MG
     Dates: start: 20200914, end: 20200916
  11. CARBOPLATIN. [Suspect]
     Active Substance: CARBOPLATIN
     Dosage: (1?2 DAYS) RD = 250 MG CD = 500 MG
     Dates: start: 20200914, end: 20200916
  12. TEMODAL [Suspect]
     Active Substance: TEMOZOLOMIDE
     Indication: ALVEOLAR RHABDOMYOSARCOMA
     Dosage: (1?5 DAYS) SINGLE DOSE (SD) ? 150 MG, DAILY DOSE (DD) 750 MG
     Route: 048
     Dates: start: 20200522, end: 20200620
  13. TOPOTECAN [Suspect]
     Active Substance: TOPOTECAN HYDROCHLORIDE
     Dosage: (1?3 DAYS) SINGLE DOSE (SD) = 2MG DAILY DOSE (DD) = 6MG
     Dates: start: 20200708, end: 20200712
  14. TEMODAL [Suspect]
     Active Substance: TEMOZOLOMIDE
     Indication: EAR NEOPLASM
  15. CYCLOPHOSPHAMIDE. [Suspect]
     Active Substance: CYCLOPHOSPHAMIDE
     Dosage: (1?3 DAYS) SINGLE DOSE (SD) = 1500 MG DAILY DOSE (DD) = 3000 MG
     Dates: start: 20201008, end: 20201010
  16. CARBOPLATIN. [Suspect]
     Active Substance: CARBOPLATIN
     Indication: RHABDOMYOSARCOMA
     Dosage: (4?5 DAYS) SINGLE DOSE (SD) = 250MG DAILY DOSE (DD) = 500MG
     Dates: start: 20200616, end: 20200620
  17. CARBOPLATIN. [Suspect]
     Active Substance: CARBOPLATIN
     Dosage: (4?5 DAYS) SINGLE DOSE (SD) = 250MG DAILY DOSE (DD) = 500MG
     Dates: start: 20200708, end: 20200712
  18. VINCRISTINE [Suspect]
     Active Substance: VINCRISTINE
     Indication: RHABDOMYOSARCOMA
     Dosage: (1.8.15 DAYS) SINGLE DOSE (SD) = 1.5 MG DAILY DOSE (DD) = 4.5MG
     Dates: start: 20200520, end: 20200620
  19. CYCLOPHOSPHAMIDE. [Suspect]
     Active Substance: CYCLOPHOSPHAMIDE
     Indication: RHABDOMYOSARCOMA
     Dosage: (1?3 DAYS) SINGLE DOSE (SD) = 1500 MG DAILY DOSE (DD) = 3000 MG
     Dates: start: 20200814, end: 20200816
  20. CARBOPLATIN. [Suspect]
     Active Substance: CARBOPLATIN
     Dosage: (1?2 DAYS) RD = 250 MG CD = 500 MG
     Dates: start: 20201103, end: 20201104

REACTIONS (18)
  - Biliary dilatation [Unknown]
  - Renal vein compression [Unknown]
  - Renal scan abnormal [Unknown]
  - Lymph nodes scan abnormal [Unknown]
  - Cancer pain [Unknown]
  - Gallbladder enlargement [Unknown]
  - Pancreatitis acute [Unknown]
  - Hepatitis toxic [Unknown]
  - Metastases to pancreas [Unknown]
  - Odynophagia [Recovering/Resolving]
  - Spinal disorder [Unknown]
  - Spleen scan abnormal [Unknown]
  - Pleural adhesion [Unknown]
  - Drug ineffective [Unknown]
  - Gastrointestinal disorder [Unknown]
  - Metastases to peripheral vascular system [Unknown]
  - Hepatomegaly [Unknown]
  - Metastases to liver [Unknown]

NARRATIVE: CASE EVENT DATE: 20200611
